FAERS Safety Report 8499418-X (Version None)
Quarter: 2012Q3

REPORT INFORMATION
  Report Type: 
  Country: None (occurrence: None)
  Receive Date: 20120710
  Receipt Date: 20120705
  Transmission Date: 20120928
  Serious: Yes (Hospitalization, Other)
  Sender: FDA-Public Use
  Company Number: US-AMGEN-USASP2011050121

PATIENT
  Age: 62 Year
  Sex: Female
  Weight: 65.397 kg

DRUGS (13)
  1. NEXIUM [Concomitant]
     Dosage: 40 MG, QD
     Route: 048
  2. FOLVITE                            /00024201/ [Concomitant]
     Dosage: 1 MG, QD
     Route: 048
  3. MULTI-VITAMINS [Concomitant]
     Dosage: UNK UNK, QD
     Route: 048
  4. CELEBREX [Concomitant]
     Dosage: 200 MG, BID
     Dates: start: 20120625
  5. ENBREL [Suspect]
     Dosage: 25 MG, QD
  6. TYLENOL WITH CODEIN #3 [Concomitant]
     Dosage: UNK UNK, Q4H
     Route: 048
     Dates: start: 20120305
  7. ZOCOR [Concomitant]
     Dosage: 40 MG, QD
     Route: 048
  8. VITAMIN D [Concomitant]
     Dosage: 2000 IU, QD
     Route: 048
     Dates: start: 20110201
  9. ASPIRIN [Concomitant]
     Dosage: 81 MG, QD
     Route: 048
  10. DELTASONE                          /00044701/ [Concomitant]
     Dosage: 5 MG, QD
     Route: 048
     Dates: start: 20111006
  11. CALCIUM [Concomitant]
     Dosage: 500 MG, QD
     Dates: start: 20110201
  12. ENBREL [Suspect]
     Indication: RHEUMATOID ARTHRITIS
     Dosage: 50 MG, QWK
     Route: 058
     Dates: start: 20090101
  13. SPIRIVA [Concomitant]
     Indication: CHRONIC OBSTRUCTIVE PULMONARY DISEASE
     Dosage: 18 MUG, QD
     Route: 045
     Dates: start: 20090911

REACTIONS (15)
  - SYNOVITIS [None]
  - LUNG CARCINOMA CELL TYPE UNSPECIFIED STAGE I [None]
  - INTRAOCULAR LENS IMPLANT [None]
  - JOINT RANGE OF MOTION DECREASED [None]
  - MUSCULOSKELETAL STIFFNESS [None]
  - DRY EYE [None]
  - POOR PERIPHERAL CIRCULATION [None]
  - RHEUMATOID ARTHRITIS [None]
  - ACTIVITIES OF DAILY LIVING IMPAIRED [None]
  - MALAISE [None]
  - DECREASED APPETITE [None]
  - ABDOMINAL DISCOMFORT [None]
  - LARYNGEAL CANCER [None]
  - CATARACT [None]
  - REFRACTION DISORDER [None]
